FAERS Safety Report 5406752-6 (Version None)
Quarter: 2007Q3

REPORT INFORMATION
  Report Type: 
  Country: None (occurrence: None)
  Receive Date: 20070807
  Receipt Date: 20070731
  Transmission Date: 20080115
  Serious: Yes (Other)
  Sender: FDA-Public Use
  Company Number: PHBS2007GB12790

PATIENT
  Age: 47 Year
  Sex: Male

DRUGS (5)
  1. CLOZAPINE [Suspect]
     Indication: SCHIZOPHRENIA, PARANOID TYPE
     Dosage: 450 MG/D
  2. CLOZAPINE [Suspect]
     Dosage: 750 MG/D
     Route: 048
  3. CIPROFLOXACIN [Suspect]
     Dosage: 500 MG, BID
  4. AMISULPRIDE [Concomitant]
     Dosage: 450 MG/D
  5. LORAZEPAM [Concomitant]
     Dosage: 4.5 MG/D

REACTIONS (12)
  - ANTIPSYCHOTIC DRUG LEVEL INCREASED [None]
  - BLOOD URINE PRESENT [None]
  - BODY TEMPERATURE INCREASED [None]
  - DRUG INTERACTION [None]
  - ERYTHEMA [None]
  - ESCHERICHIA INFECTION [None]
  - GROIN PAIN [None]
  - ORCHITIS [None]
  - SCROTAL SWELLING [None]
  - TACHYCARDIA [None]
  - TENDERNESS [None]
  - TESTICULAR SWELLING [None]
